FAERS Safety Report 15507817 (Version 2)
Quarter: 2018Q4

REPORT INFORMATION
  Report Type: Spontaneous
  Country: US (occurrence: US)
  Receive Date: 20181016
  Receipt Date: 20181108
  Transmission Date: 20190205
  Serious: No
  Sender: FDA-Public Use
  Company Number: US-GILEAD-2018-0367752

PATIENT
  Age: 45 Year
  Sex: Female
  Weight: 71.2 kg

DRUGS (7)
  1. FISH OIL [Concomitant]
     Active Substance: FISH OIL
  2. KEPPRA [Concomitant]
     Active Substance: LEVETIRACETAM
  3. CALCIUM D3 [Concomitant]
     Active Substance: CALCIUM\CHOLECALCIFEROL
  4. TRUVADA [Suspect]
     Active Substance: EMTRICITABINE\TENOFOVIR DISOPROXIL FUMARATE
     Indication: HIV INFECTION
     Dosage: 200/300 MG
     Route: 048
     Dates: start: 20070111, end: 20181011
  5. MULTIVITAMIN + MINERAL [Concomitant]
  6. KALETRA [Concomitant]
     Active Substance: LOPINAVIR\RITONAVIR
  7. IRON [Concomitant]
     Active Substance: IRON

REACTIONS (7)
  - Asthenia [Not Recovered/Not Resolved]
  - Dizziness [Not Recovered/Not Resolved]
  - Exercise tolerance decreased [Not Recovered/Not Resolved]
  - Headache [Not Recovered/Not Resolved]
  - Hyperhidrosis [Not Recovered/Not Resolved]
  - Depression [Not Recovered/Not Resolved]
  - Fatigue [Not Recovered/Not Resolved]
